FAERS Safety Report 24024565 (Version 1)
Quarter: 2024Q2

REPORT INFORMATION
  Report Type: Report from Study
  Country: FI (occurrence: FI)
  Receive Date: 20240628
  Receipt Date: 20240628
  Transmission Date: 20240716
  Serious: No
  Sender: FDA-Public Use
  Company Number: FI-ROCHE-3515244

PATIENT
  Age: 76 Year
  Sex: Female

DRUGS (21)
  1. ALECTINIB [Suspect]
     Active Substance: ALECTINIB
     Indication: Lung cancer metastatic
     Route: 048
     Dates: start: 20181113
  2. ALECTINIB [Suspect]
     Active Substance: ALECTINIB
     Route: 048
     Dates: start: 20220203
  3. CALCIUM\CHOLECALCIFEROL [Concomitant]
     Active Substance: CALCIUM\CHOLECALCIFEROL
     Indication: Osteoporosis
     Dosage: 2 TABLET
     Route: 048
  4. FUROSEMIDE [Concomitant]
     Active Substance: FUROSEMIDE
     Indication: Oedema
     Route: 048
  5. VAGIFEM [Concomitant]
     Active Substance: ESTRADIOL
     Indication: Hormone replacement therapy
     Route: 067
  6. MIRABEGRON [Concomitant]
     Active Substance: MIRABEGRON
     Indication: Urinary tract infection
     Route: 048
  7. XGEVA [Concomitant]
     Active Substance: DENOSUMAB
     Indication: Lung neoplasm malignant
     Route: 058
  8. MIRTAZAPINE [Concomitant]
     Active Substance: MIRTAZAPINE
     Indication: Anxiety
     Route: 048
  9. PANTOPRAZOLE SODIUM [Concomitant]
     Active Substance: PANTOPRAZOLE SODIUM
     Indication: Dyspepsia
     Route: 048
  10. SODIUM PICOSULFATE [Concomitant]
     Active Substance: SODIUM PICOSULFATE
     Indication: Constipation
     Route: 048
  11. LACTULOSE [Concomitant]
     Active Substance: LACTULOSE
     Indication: Constipation
     Route: 048
  12. DIBUCAINE HYDROCHLORIDE\PREDNISOLONE [Concomitant]
     Active Substance: DIBUCAINE HYDROCHLORIDE\PREDNISOLONE
     Indication: Haemorrhoids
     Route: 054
  13. PARASETAMOL [Concomitant]
     Indication: Pain
     Route: 048
  14. TEMESTA [Concomitant]
     Indication: Insomnia
     Route: 048
  15. IMOVANE [Concomitant]
     Active Substance: ZOPICLONE
     Indication: Insomnia
     Route: 048
  16. NITROFUR-C [Concomitant]
     Indication: Urinary tract infection
     Dosage: 1 TABLET
     Route: 048
     Dates: start: 20221014
  17. ESTRIOL [Concomitant]
     Active Substance: ESTRIOL
     Indication: Hormone replacement therapy
     Route: 067
  18. CERIDAL (FINLAND) [Concomitant]
     Route: 067
     Dates: start: 20221103
  19. POTASSIUM CHLORIDE [Concomitant]
     Active Substance: POTASSIUM CHLORIDE
     Indication: Hypokalaemia
     Route: 048
     Dates: start: 20230815
  20. BECLONASAL [Concomitant]
     Route: 055
  21. CLOBETASOL [Concomitant]
     Active Substance: CLOBETASOL
     Indication: Lichen sclerosus
     Route: 067

REACTIONS (1)
  - Headache [Recovered/Resolved]

NARRATIVE: CASE EVENT DATE: 20231213
